FAERS Safety Report 12236469 (Version 2)
Quarter: 2016Q2

REPORT INFORMATION
  Report Type: Spontaneous
  Country: JP (occurrence: JP)
  Receive Date: 20160404
  Receipt Date: 20160411
  Transmission Date: 20160815
  Serious: Yes (Death)
  Sender: FDA-Public Use
  Company Number: PHHY2016JP042447

PATIENT
  Age: 66 Year
  Sex: Female

DRUGS (6)
  1. VINCRISTINE [Suspect]
     Active Substance: VINCRISTINE
     Indication: SARCOMATOID MESOTHELIOMA
     Dosage: 1.5 MG/M2, UNK
     Route: 065
  2. PACLITAXEL. [Suspect]
     Active Substance: PACLITAXEL
     Indication: SARCOMATOID MESOTHELIOMA
     Dosage: 60 MG/M2, UNK
     Route: 042
  3. ADRIAMYCIN [Suspect]
     Active Substance: DOXORUBICIN HYDROCHLORIDE
     Indication: SARCOMATOID MESOTHELIOMA
     Dosage: 50 MG/M2, UNK
     Route: 065
  4. CYCLOPHOSPHAMIDE. [Suspect]
     Active Substance: CYCLOPHOSPHAMIDE
     Indication: SARCOMATOID MESOTHELIOMA
     Dosage: 500 MG/M2, UNK
     Route: 065
  5. DACARBAZINE. [Concomitant]
     Active Substance: DACARBAZINE
     Indication: SARCOMATOID MESOTHELIOMA
     Dosage: 250 MG/M2, UNK
     Route: 065
  6. CARBOPLATIN. [Suspect]
     Active Substance: CARBOPLATIN
     Indication: SARCOMATOID MESOTHELIOMA
     Route: 042

REACTIONS (3)
  - Sarcomatoid mesothelioma [Fatal]
  - Disseminated intravascular coagulation [Fatal]
  - Disease progression [Fatal]
